FAERS Safety Report 8025753-5 (Version None)
Quarter: 2012Q1

REPORT INFORMATION
  Report Type: 
  Country: None (occurrence: None)
  Receive Date: 20120105
  Receipt Date: 20110107
  Transmission Date: 20120608
  Serious: No
  Sender: FDA-Public Use
  Company Number: US-ABBOTT-11P-163-0696083-00

PATIENT
  Sex: Female
  Weight: 61.744 kg

DRUGS (1)
  1. SYNTHROID [Suspect]
     Indication: HYPOTHYROIDISM
     Dates: start: 20100901

REACTIONS (3)
  - INCORRECT STORAGE OF DRUG [None]
  - RASH PRURITIC [None]
  - DRY SKIN [None]
